FAERS Safety Report 5605956-7 (Version None)
Quarter: 2008Q1

REPORT INFORMATION
  Report Type: 
  Country: None (occurrence: None)
  Receive Date: 20080129
  Receipt Date: 20080123
  Transmission Date: 20080703
  Serious: Yes (Death, Hospitalization)
  Sender: FDA-Public Use
  Company Number: JP-BRISTOL-MYERS SQUIBB COMPANY-14056782

PATIENT
  Age: 77 Year
  Sex: Male

DRUGS (2)
  1. HYDREA [Suspect]
     Indication: CHRONIC LYMPHOCYTIC LEUKAEMIA
     Route: 048
  2. MITOXANTRONE [Concomitant]

REACTIONS (2)
  - ACUTE MONOCYTIC LEUKAEMIA [None]
  - TRICHOSPORON INFECTION [None]
